FAERS Safety Report 5609496-0 (Version None)
Quarter: 2008Q1

REPORT INFORMATION
  Report Type: 
  Country: None (occurrence: None)
  Receive Date: 20080131
  Receipt Date: 20080121
  Transmission Date: 20080703
  Serious: Yes (Other)
  Sender: FDA-Public Use
  Company Number: BE-PFIZER INC-2008006790

PATIENT
  Age: 62 Year
  Sex: Male

DRUGS (2)
  1. METHYLPREDNISOLONE [Suspect]
     Indication: BRONCHOPNEUMOPATHY
  2. FLUTICASONE PROPIONATE [Suspect]
     Indication: BRONCHOPNEUMOPATHY
     Route: 055

REACTIONS (2)
  - ASPERGILLOSIS [None]
  - PNEUMONIA NECROTISING [None]
